FAERS Safety Report 4437957-9 (Version None)
Quarter: 2004Q3

REPORT INFORMATION
  Report Type: 
  Country: None (occurrence: None)
  Receive Date: 20040831
  Receipt Date: 20040714
  Transmission Date: 20050211
  Serious: Yes (Other)
  Sender: FDA-Public Use
  Company Number: NZ-GLAXOSMITHKLINE-B0340367A

PATIENT
  Sex: Female

DRUGS (2)
  1. PAROXETINE HCL [Suspect]
     Indication: DEPRESSIVE SYMPTOM
     Dosage: 20MG PER DAY
     Route: 048
     Dates: end: 20040401
  2. NO CONCURRENT MEDICATION [Concomitant]

REACTIONS (10)
  - AFFECT LABILITY [None]
  - ANOREXIA [None]
  - ANXIETY [None]
  - DRUG WITHDRAWAL SYNDROME [None]
  - EMOTIONAL DISTRESS [None]
  - LONG QT SYNDROME [None]
  - NERVOUSNESS [None]
  - PANIC ATTACK [None]
  - SLEEP DISORDER [None]
  - TREMOR [None]
